FAERS Safety Report 7117638-3 (Version None)
Quarter: 2010Q4

REPORT INFORMATION
  Report Type: 
  Country: None (occurrence: None)
  Receive Date: 20101122
  Receipt Date: 20101113
  Transmission Date: 20110411
  Serious: Yes (Death, Hospitalization, Other)
  Sender: FDA-Public Use
  Company Number: IN-BRISTOL-MYERS SQUIBB COMPANY-14793806

PATIENT
  Age: 65 Year
  Sex: Male

DRUGS (14)
  1. APIXABAN [Suspect]
     Indication: THROMBOSIS PROPHYLAXIS
     Route: 048
     Dates: start: 20090313, end: 20090927
  2. WARFARIN SODIUM [Suspect]
     Indication: THROMBOSIS PROPHYLAXIS
     Dosage: INTERRUPTED ON 29MAR09
     Route: 048
     Dates: start: 20090313, end: 20090929
  3. PLACEBO [Suspect]
     Indication: THROMBOSIS PROPHYLAXIS
     Dosage: STOPPED ON 27SEP09 IN APIX ARM STOPPED ON 29SEP09 IN WARF ARM
     Route: 048
     Dates: start: 20090313, end: 20090901
  4. DIGOXIN TABS [Concomitant]
     Indication: CARDIAC FAILURE
     Dates: start: 20051001
  5. RAMIPRIL [Concomitant]
     Indication: CORONARY ARTERY DISEASE
     Dosage: TABS
     Dates: start: 20051001
  6. RAMIPRIL [Concomitant]
     Indication: HYPERTENSION
     Dosage: TABS
     Dates: start: 20051001
  7. METOPROLOL TARTRATE [Concomitant]
     Indication: CORONARY ARTERY DISEASE
     Dosage: TABS
     Dates: start: 20051001
  8. METOPROLOL TARTRATE [Concomitant]
     Indication: HYPERTENSION
     Dosage: TABS
     Dates: start: 20051001
  9. LASIX [Concomitant]
     Indication: CARDIAC FAILURE
     Dosage: TABS
     Dates: start: 20051001
  10. RANOLAZINE HCL [Concomitant]
     Dosage: TABS
     Dates: start: 20051001
  11. ALDOSTERONE [Concomitant]
     Dosage: TABS
     Dates: start: 20051001, end: 20090924
  12. ATORVASTATIN [Concomitant]
     Indication: CORONARY ARTERY DISEASE
     Dosage: TABS
     Dates: start: 20050401, end: 20091218
  13. ALDACTONE [Concomitant]
     Indication: CARDIAC FAILURE
     Dates: start: 20050401, end: 20090924
  14. ASPIRIN [Concomitant]
     Indication: CORONARY ARTERY DISEASE
     Dosage: 13-MAR-2009 TO 29-SEP-2009 AND 11-OCT-2009 TO 18-DEC-2009
     Dates: start: 20090313, end: 20091218

REACTIONS (10)
  - ATRIAL FIBRILLATION [None]
  - CARDIAC ARREST [None]
  - HAEMATOCRIT DECREASED [None]
  - HAEMOGLOBIN DECREASED [None]
  - ISCHAEMIC STROKE [None]
  - MORGANELLA TEST POSITIVE [None]
  - NEPHROSCLEROSIS [None]
  - RENAL CYST [None]
  - TUBULOINTERSTITIAL NEPHRITIS [None]
  - URINARY TRACT INFECTION [None]
